FAERS Safety Report 8710862 (Version 2)
Quarter: 2012Q4

REPORT INFORMATION
  Report Type: Report from Study
  Country: CH (occurrence: CZ)
  Receive Date: 20120807
  Receipt Date: 20120914
  Transmission Date: 20130627
  Serious: Yes (Life-Threatening, Hospitalization)
  Sender: FDA-Public Use
  Company Number: CZ-BRISTOL-MYERS SQUIBB COMPANY-16590739

PATIENT
  Age: 69 Year
  Sex: Male
  Weight: 63 kg

DRUGS (3)
  1. CETUXIMAB [Suspect]
     Indication: COLORECTAL CANCER METASTATIC
     Dosage: 13Mar-02Apr12,250mg/m2,1 in 1wk
resumed on 11May12-unk,50mg/m2
4th inf on 2Apr12
     Route: 042
     Dates: start: 20120313
  2. IRINOTECAN HCL [Suspect]
     Indication: COLORECTAL CANCER METASTATIC
     Dosage: 13Mar-26Mar12
resumed on 11May12-Unk
2nd inf 26Mar12
     Route: 042
     Dates: start: 20120313
  3. MEGACE [Concomitant]

REACTIONS (1)
  - Pulmonary embolism [Recovered/Resolved]
